FAERS Safety Report 10241228 (Version 1)
Quarter: 2014Q1

REPORT INFORMATION
  Report Type: Spontaneous
  Country: US (occurrence: None)
  Receive Date: 20140306
  Receipt Date: 20140306
  Transmission Date: 20141002
  Serious: Yes (Hospitalization, Other)
  Sender: FDA-Public Use
  Company Number: 163-21880-13051228

PATIENT
  Age: 82 Year
  Sex: Female
  Weight: 60.96 kg

DRUGS (16)
  1. REVLIMID (LENALIDOMIDE) (15 MILLIGRAM, CAPSULES) [Suspect]
     Indication: PLASMA CELL MYELOMA
     Route: 048
     Dates: start: 20130311, end: 2013
  2. ZOMETA (ZOLEDRONIC ACID) [Concomitant]
  3. ONDANSETRON HCL (ONDANSETRON HYDROCHLORIDE) [Concomitant]
  4. TYLENOL (PARACETAMOL) [Concomitant]
  5. BENADRYL (DIPHENHYDRAMINE HYDROCHLORIDE) [Concomitant]
  6. DEXAMETHASONE [Concomitant]
  7. ASPIRIN (ACETYLSALICYLIC ACID) [Concomitant]
  8. GLUCOPHAGE (METFORMIN HYDROCHLORIDE) [Concomitant]
  9. ATENOLOL [Concomitant]
  10. PRILOSEC (OMEPRAZOLE) [Concomitant]
  11. TRAMADOL HCL (TRAMADOL HYDROCHLORIDE) [Concomitant]
  12. CHLORTHALIDONE [Concomitant]
  13. METHIMAZOLE (THIAMAZOLE) [Concomitant]
  14. POTASSIUM [Concomitant]
  15. FOSINOPRIL SODIUM [Concomitant]
  16. RESTASIS (CICLOSPORIN) [Concomitant]

REACTIONS (7)
  - Hypocalcaemia [None]
  - Anaemia [None]
  - Gastritis [None]
  - Bone pain [None]
  - Neuropathy peripheral [None]
  - Hypoaesthesia [None]
  - Paraesthesia [None]
